APPROVED DRUG PRODUCT: WELIREG
Active Ingredient: BELZUTIFAN
Strength: 40MG
Dosage Form/Route: TABLET;ORAL
Application: N215383 | Product #001
Applicant: MERCK SHARP AND DOHME CORP A SUB OF MERCK AND CO INC
Approved: Aug 13, 2021 | RLD: Yes | RS: Yes | Type: RX

PATENTS:
Patent RE49948 | Expires: Sep 5, 2034
Patent 9908845 | Expires: Sep 5, 2034
Patent 9908845 | Expires: Sep 5, 2034
Patent RE49948 | Expires: Sep 5, 2034
Patent 9908845 | Expires: Sep 5, 2034
Patent RE49948 | Expires: Sep 5, 2034
Patent 12358870 | Expires: Jun 30, 2042

EXCLUSIVITY:
Code: I-931 | Date: Dec 14, 2026
Code: I-968 | Date: May 14, 2028
Code: NCE | Date: Aug 13, 2026
Code: ODE-364 | Date: Aug 13, 2028